FAERS Safety Report 15221502 (Version 1)
Quarter: 2018Q3

REPORT INFORMATION
  Report Type: Report from Study
  Country: DE (occurrence: DE)
  Receive Date: 20180731
  Receipt Date: 20180731
  Transmission Date: 20181010
  Serious: Yes (Death, Hospitalization)
  Sender: FDA-Public Use
  Company Number: DE-TAIHO ONCOLOGY  INC-JPTT180505

PATIENT
  Age: 42 Year
  Sex: Female
  Weight: 70 kg

DRUGS (10)
  1. ESTRIFAM [Concomitant]
     Active Substance: ESTRADIOL
     Indication: HORMONE THERAPY
     Dosage: 2 MG, QD
     Route: 048
     Dates: start: 201709
  2. LONSURF [Suspect]
     Active Substance: TIPIRACIL HYDROCHLORIDE\TRIFLURIDINE
     Indication: COLORECTAL CANCER METASTATIC
     Dosage: 60 MG (35 MG/M2), BID, ON DAYS 1?5 AND 8?12 OF EACH 28?DAY CYCLE
     Route: 048
     Dates: start: 20180222, end: 20180601
  3. OXALIPLATIN 85MG/M2 [Suspect]
     Active Substance: OXALIPLATIN
     Indication: COLORECTAL CANCER METASTATIC
     Dosage: 147 MG (85 MG/M2), ON DAY 1 OF EACH 14?DAY CYCLE
     Route: 042
     Dates: start: 20180222, end: 20180528
  4. GRANISETRON HYDROCHLORIDE. [Concomitant]
     Active Substance: GRANISETRON HYDROCHLORIDE
     Indication: PROPHYLAXIS
     Dosage: 1 MG, UNK
     Route: 051
     Dates: start: 20180222
  5. VOMEX A [Concomitant]
     Active Substance: DIMENHYDRINATE
     Indication: VOMITING
     Dosage: 50 MG, PRN
     Route: 048
     Dates: start: 20180222
  6. LOPERAMIDE HYDROCHLORIDE. [Concomitant]
     Active Substance: LOPERAMIDE HYDROCHLORIDE
     Indication: DIARRHOEA
     Dosage: 2 MG, PRN
     Route: 048
     Dates: start: 20180222
  7. PERENTEROL [Concomitant]
     Active Substance: SACCHAROMYCES CEREVISIAE
     Indication: DIARRHOEA
     Dosage: 250 MG, PRN
     Route: 048
     Dates: start: 20180409
  8. XARELTO [Concomitant]
     Active Substance: RIVAROXABAN
     Indication: THROMBOPHLEBITIS
     Dosage: 20 MG, QD
     Route: 048
     Dates: start: 20180504
  9. DEXAMETHASONE. [Concomitant]
     Active Substance: DEXAMETHASONE
     Indication: PROPHYLAXIS
     Dosage: 20 MG, UNK
     Route: 051
     Dates: start: 20180222
  10. NIVOLUMAB 3 MG/KG ? CONTROL GROUP [Suspect]
     Active Substance: NIVOLUMAB
     Indication: COLORECTAL CANCER METASTATIC
     Dosage: 210 MG (3 MG/KG), ON DAY 1OF EACH 14 DAY CYCLE ON THE SAME DAY
     Route: 042
     Dates: start: 20180222, end: 20180528

REACTIONS (6)
  - Diarrhoea [None]
  - Pneumonitis [Fatal]
  - Thrombophlebitis [None]
  - Pulmonary embolism [None]
  - Pleural effusion [None]
  - Pain [None]

NARRATIVE: CASE EVENT DATE: 20180607
